FAERS Safety Report 11059795 (Version 1)
Quarter: 2015Q2

REPORT INFORMATION
  Report Type: Spontaneous
  Country: SE (occurrence: SE)
  Receive Date: 20150423
  Receipt Date: 20150423
  Transmission Date: 20150821
  Serious: Yes (Disabling)
  Sender: FDA-Public Use
  Company Number: SE-TEVA-556925ISR

PATIENT
  Age: 67 Year
  Sex: Male

DRUGS (2)
  1. BISOPROLOL 1.25 MILLIGRAM TABLETTER PER ORAL [Suspect]
     Active Substance: BISOPROLOL
     Route: 048
  2. BISOPROLOL 2.5 MILLIGRAM TABLETTER PER ORAL [Suspect]
     Active Substance: BISOPROLOL
     Route: 048

REACTIONS (2)
  - Neuropathy peripheral [Not Recovered/Not Resolved]
  - Peripheral coldness [Not Recovered/Not Resolved]
